FAERS Safety Report 5406092-5 (Version None)
Quarter: 2007Q3

REPORT INFORMATION
  Report Type: 
  Country: None (occurrence: None)
  Receive Date: 20070720
  Receipt Date: 20070720
  Transmission Date: 20080115
  Serious: No
  Sender: FDA-Public Use
  Company Number: None

PATIENT
  Sex: Female

DRUGS (2)
  1. XANAX [Suspect]
     Indication: PANIC DISORDER
     Dosage: 0.75MG QID PO
     Route: 048
     Dates: start: 20070601, end: 20070701
  2. BUSPAR [Suspect]
     Indication: GENERALISED ANXIETY DISORDER
     Dosage: 10MG TID PO
     Route: 048
     Dates: start: 20070601, end: 20070701

REACTIONS (4)
  - ANXIETY [None]
  - BLOOD PRESSURE INCREASED [None]
  - DIZZINESS [None]
  - PHARMACEUTICAL PRODUCT COMPLAINT [None]
